FAERS Safety Report 13422236 (Version 2)
Quarter: 2017Q2

REPORT INFORMATION
  Report Type: Spontaneous
  Country: DE (occurrence: DE)
  Receive Date: 20170410
  Receipt Date: 20170517
  Transmission Date: 20170830
  Serious: Yes (Hospitalization, Other)
  Sender: FDA-Public Use
  Company Number: DE-TORRENT-00006344

PATIENT
  Age: 55 Year
  Sex: Male
  Weight: 95 kg

DRUGS (4)
  1. AMBROXOL [Concomitant]
     Active Substance: AMBROXOL
  2. MOXIFLOXACIN. [Suspect]
     Active Substance: MOXIFLOXACIN
  3. CEFUROXIME SODIUM. [Concomitant]
     Active Substance: CEFUROXIME SODIUM
  4. ROXI [Concomitant]
     Active Substance: UNSPECIFIED INGREDIENT

REACTIONS (11)
  - Restlessness [Unknown]
  - Malaise [Unknown]
  - Blood pressure increased [Unknown]
  - Arrhythmia [Unknown]
  - Tremor [Unknown]
  - Dizziness [Unknown]
  - Anxiety [Unknown]
  - Muscular weakness [Unknown]
  - Dehydration [Unknown]
  - Circulatory collapse [Unknown]
  - Asthenia [Unknown]

NARRATIVE: CASE EVENT DATE: 201702
